FAERS Safety Report 8428537-9 (Version None)
Quarter: 2012Q2

REPORT INFORMATION
  Report Type: 
  Country: None (occurrence: None)
  Receive Date: 20120612
  Receipt Date: 20120601
  Transmission Date: 20120825
  Serious: Yes (Hospitalization)
  Sender: FDA-Public Use
  Company Number: CH-BRISTOL-MYERS SQUIBB COMPANY-16665937

PATIENT
  Age: 59 Year
  Sex: Male

DRUGS (3)
  1. CETUXIMAB [Suspect]
     Indication: OESOPHAGEAL CARCINOMA
     Dosage: LAST ADMINS ON 18MAY12
     Route: 042
     Dates: start: 20120321
  2. CISPLATIN [Suspect]
     Indication: OESOPHAGEAL CARCINOMA
     Dosage: LAST ADMINS ON 18MAY12
     Route: 042
     Dates: start: 20120321
  3. TAXOTERE [Suspect]
     Indication: OESOPHAGEAL CARCINOMA
     Dosage: LAST ADMINS ON 18MAY12
     Route: 042
     Dates: start: 20120321

REACTIONS (3)
  - NAUSEA [None]
  - DIZZINESS [None]
  - FATIGUE [None]
